FAERS Safety Report 11032831 (Version 1)
Quarter: 2015Q2

REPORT INFORMATION
  Report Type: Spontaneous
  Country: JP (occurrence: JP)
  Receive Date: 20150415
  Receipt Date: 20150415
  Transmission Date: 20150821
  Serious: Yes (Other)
  Sender: FDA-Public Use
  Company Number: JP-PFIZER INC-2015124188

PATIENT
  Age: 70 Year
  Sex: Female

DRUGS (15)
  1. MEROPENEM. [Concomitant]
     Active Substance: MEROPENEM
     Indication: MEDIASTINITIS
  2. CEFTRIAXONE. [Concomitant]
     Active Substance: CEFTRIAXONE
     Indication: MEDIASTINITIS
  3. CLINDAMYCIN PHOSPHATE. [Suspect]
     Active Substance: CLINDAMYCIN PHOSPHATE
     Indication: PLEURAL EFFUSION
     Dosage: UNK
  4. CLINDAMYCIN PHOSPHATE. [Suspect]
     Active Substance: CLINDAMYCIN PHOSPHATE
     Indication: PLEURISY
  5. CLINDAMYCIN PHOSPHATE. [Suspect]
     Active Substance: CLINDAMYCIN PHOSPHATE
     Indication: MEDIASTINITIS
  6. TOCILIZUMAB [Concomitant]
     Active Substance: TOCILIZUMAB
     Indication: RHEUMATOID ARTHRITIS
     Dosage: 162 MG, UNK
     Route: 041
  7. MEROPENEM. [Concomitant]
     Active Substance: MEROPENEM
     Indication: PLEURAL EFFUSION
  8. MEROPENEM. [Concomitant]
     Active Substance: MEROPENEM
     Indication: PLEURISY
  9. CLINDAMYCIN PHOSPHATE. [Suspect]
     Active Substance: CLINDAMYCIN PHOSPHATE
     Indication: OESOPHAGEAL PERFORATION
  10. CEFTRIAXONE. [Concomitant]
     Active Substance: CEFTRIAXONE
     Indication: PLEURAL EFFUSION
  11. CEFTRIAXONE. [Concomitant]
     Active Substance: CEFTRIAXONE
     Indication: PLEURISY
  12. CEFTRIAXONE. [Concomitant]
     Active Substance: CEFTRIAXONE
     Indication: OESOPHAGEAL PERFORATION
  13. METHOTREXATE [Concomitant]
     Active Substance: METHOTREXATE
     Indication: RHEUMATOID ARTHRITIS
     Dosage: 6 MG, UNK
     Route: 048
  14. MEROPENEM. [Concomitant]
     Active Substance: MEROPENEM
     Indication: OESOPHAGEAL PERFORATION
  15. PREDNISOLONE. [Concomitant]
     Active Substance: PREDNISOLONE
     Indication: RHEUMATOID ARTHRITIS
     Dosage: 2.5 MG, UNK
     Route: 048

REACTIONS (1)
  - Organising pneumonia [Recovered/Resolved]
